FAERS Safety Report 4716585-1 (Version None)
Quarter: 2005Q3

REPORT INFORMATION
  Report Type: 
  Country: None (occurrence: None)
  Receive Date: 20050713
  Receipt Date: 20050630
  Transmission Date: 20060218
  Serious: Yes (Death)
  Sender: FDA-Public Use
  Company Number: 2005096757

PATIENT
  Age: 53 Year
  Sex: Male

DRUGS (2)
  1. CAMPTOSAR [Suspect]
     Indication: ILL-DEFINED DISORDER
     Dosage: 100 MG, INTRAVENOUS
     Route: 042
     Dates: start: 20050629, end: 20050629
  2. TEGAFUR/GIMERACIL/OTERACIL POTASSIUM (TEGAFUR/GIMERACIL/OTERACIL POTAS [Concomitant]

REACTIONS (1)
  - LIVER DISORDER [None]
